FAERS Safety Report 9240820 (Version 1)
Quarter: 2013Q1

REPORT INFORMATION
  Report Type: Spontaneous
  Country: US (occurrence: None)
  Receive Date: 20121120
  Receipt Date: 20121120
  Transmission Date: 20140127
  Serious: No
  Sender: FDA-Public Use
  Company Number: 1000039594

PATIENT
  Age: 45 Year
  Sex: 0

DRUGS (1)
  1. VIIBRYD [Suspect]
     Indication: ANXIETY
     Dosage: 10 MG )10MG, 1 IN 1 D, PO
     Route: 048
     Dates: start: 20121005

REACTIONS (9)
  - Nausea [None]
  - Constipation [None]
  - Sexual dysfunction [None]
  - Increased appetite [None]
  - Fatigue [None]
  - Feeling jittery [None]
  - Flatulence [None]
  - Anxiety [None]
  - Off label use [None]
